FAERS Safety Report 8152442-9 (Version None)
Quarter: 2012Q1

REPORT INFORMATION
  Report Type: 
  Country: None (occurrence: None)
  Receive Date: 20120103
  Receipt Date: 20111003
  Transmission Date: 20120608
  Serious: No
  Sender: FDA-Public Use
  Company Number: AE-2011-002042

PATIENT
  Age: 41 Year
  Sex: Female

DRUGS (4)
  1. PEGASYS [Concomitant]
  2. INCIVEK [Suspect]
     Dosage: 2250 MG (750 MG,3 IN 1 D),ORAL
     Route: 048
     Dates: start: 20110930
  3. VIMPAT [Concomitant]
  4. RIBAVIRIN [Concomitant]

REACTIONS (1)
  - VOMITING [None]
